FAERS Safety Report 6519658-6 (Version None)
Quarter: 2009Q4

REPORT INFORMATION
  Report Type: 
  Country: None (occurrence: None)
  Receive Date: 20091228
  Receipt Date: 20091216
  Transmission Date: 20100525
  Serious: Yes (Hospitalization, Other)
  Sender: FDA-Public Use
  Company Number: JP-PFIZER INC-2008088392

PATIENT
  Age: 72 Year
  Sex: Male
  Weight: 56 kg

DRUGS (17)
  1. SUNITINIB MALATE [Suspect]
     Indication: GASTROINTESTINAL STROMAL TUMOUR
     Dosage: 50 MG, 1X/DAY
     Route: 048
     Dates: start: 20080723, end: 20090421
  2. TAMBOCOR [Suspect]
     Dosage: UNK
     Route: 048
     Dates: end: 20080929
  3. EURAX H [Concomitant]
     Route: 062
     Dates: start: 20080729, end: 20080730
  4. AZUNOL [Concomitant]
     Dates: start: 20080808, end: 20080821
  5. ELASE [Concomitant]
     Route: 042
     Dates: start: 20080808, end: 20080821
  6. XYLOCAINE [Concomitant]
     Route: 042
     Dates: start: 20080808, end: 20080821
  7. WATER FOR INJECTION [Concomitant]
     Route: 042
     Dates: start: 20080808, end: 20080821
  8. NEOPHAGEN [Concomitant]
     Route: 042
     Dates: start: 20080808, end: 20080808
  9. ROPION [Concomitant]
     Route: 042
     Dates: start: 20080810, end: 20080810
  10. PURSENNID [Concomitant]
     Dosage: UNK
     Route: 048
     Dates: start: 20080812
  11. ASPIRIN [Concomitant]
     Dosage: UNK
     Route: 048
  12. KERLONG [Concomitant]
     Dosage: UNK
     Route: 048
  13. RISUMIC [Concomitant]
     Dosage: UNK
     Route: 048
     Dates: end: 20080929
  14. MAGNESIUM OXIDE [Concomitant]
     Dosage: UNK
     Route: 048
  15. CERNILTON [Concomitant]
     Dosage: UNK
     Route: 048
  16. MARZULENE S [Concomitant]
     Dosage: UNK
     Route: 048
  17. GASCON [Concomitant]
     Dosage: UNK
     Route: 048

REACTIONS (5)
  - ABDOMINAL PAIN [None]
  - BRADYCARDIA [None]
  - NEUTROPHIL COUNT DECREASED [None]
  - PLATELET COUNT DECREASED [None]
  - WHITE BLOOD CELL COUNT DECREASED [None]
